FAERS Safety Report 18925076 (Version 1)
Quarter: 2021Q1

REPORT INFORMATION
  Report Type: Spontaneous
  Country: CN (occurrence: CN)
  Receive Date: 20210222
  Receipt Date: 20210222
  Transmission Date: 20210420
  Serious: Yes (Other)
  Sender: FDA-Public Use
  Company Number: CN-PFIZER INC-2021154262

PATIENT
  Age: 2 Year
  Sex: Female
  Weight: 14.6 kg

DRUGS (1)
  1. METHYLPREDNISOLONE SODIUM SUCCINATE. [Suspect]
     Active Substance: METHYLPREDNISOLONE SODIUM SUCCINATE
     Indication: ENCEPHALOMYELITIS
     Dosage: 0.3 G, 1X/DAY
     Route: 041
     Dates: start: 20210129, end: 20210129

REACTIONS (4)
  - Bone density decreased [Recovering/Resolving]
  - Bone pain [Recovering/Resolving]
  - Osteoporosis [Recovering/Resolving]
  - Pain [Recovering/Resolving]

NARRATIVE: CASE EVENT DATE: 20210203
